FAERS Safety Report 10182590 (Version 1)
Quarter: 2014Q2

REPORT INFORMATION
  Report Type: Spontaneous
  Country: DE (occurrence: None)
  Receive Date: 20140516
  Receipt Date: 20140516
  Transmission Date: 20141212
  Serious: Yes (Hospitalization)
  Sender: FDA-Public Use
  Company Number: METF20140003

PATIENT
  Age: 41 Year
  Sex: Male

DRUGS (4)
  1. METFORMIN HYDROCHLORIDE [Suspect]
     Indication: TYPE 2 DIABETES MELLITUS
     Route: 048
     Dates: start: 201212, end: 201301
  2. INSULIN GLARGINE [Suspect]
     Indication: TYPE 2 DIABETES MELLITUS
     Dates: start: 201212
  3. PREDNISOLONE (PREDNISOLONE) (UNKNOWN) (PREDNISOLONE) [Concomitant]
  4. ALPHA LIPOIC ACID (THIOCTIC ACID) (UNKNOWN) (THIOCTIC ACID) [Concomitant]

REACTIONS (4)
  - Hepatic steatosis [None]
  - Hepatocellular injury [None]
  - Pruritus [None]
  - Rash [None]
